FAERS Safety Report 7490846-8 (Version None)
Quarter: 2011Q2

REPORT INFORMATION
  Report Type: 
  Country: None (occurrence: None)
  Receive Date: 20110519
  Receipt Date: 20110509
  Transmission Date: 20111010
  Serious: Yes (Hospitalization)
  Sender: FDA-Public Use
  Company Number: AU-JNJFOC-20110409286

PATIENT
  Sex: Female

DRUGS (2)
  1. STELARA [Suspect]
     Indication: PSORIASIS
     Route: 058
     Dates: start: 20110128
  2. STELARA [Suspect]
     Route: 058
     Dates: start: 20100716

REACTIONS (3)
  - PRURITUS [None]
  - OVARIAN CYST [None]
  - APPENDICECTOMY [None]
